FAERS Safety Report 7270546-X (Version None)
Quarter: 2011Q1

REPORT INFORMATION
  Report Type: 
  Country: None (occurrence: None)
  Receive Date: 20110125
  Receipt Date: 20110125
  Transmission Date: 20110831
  Serious: Yes (Disabling)
  Sender: FDA-Public Use
  Company Number: None

PATIENT
  Age: 64 Year
  Sex: Female
  Weight: 73.9363 kg

DRUGS (6)
  1. PLAQUENIL [Concomitant]
  2. ALENDRONATE SODIUM [Suspect]
  3. CELEBREX [Concomitant]
  4. MOBIC [Concomitant]
  5. ALENDRONATE SODIUM [Suspect]
     Indication: OSTEOPOROSIS PROPHYLAXIS
     Dosage: 70 MG. 1 PER WK. ORALLY
     Route: 048
     Dates: start: 20080101, end: 20101201
  6. ALENDRONATE SODIUM [Suspect]
     Indication: OSTEOPENIA
     Dosage: 70 MG. 1 PER WK. ORALLY
     Route: 048
     Dates: start: 20080101, end: 20101201

REACTIONS (2)
  - OSTEONECROSIS [None]
  - GAIT DISTURBANCE [None]
